FAERS Safety Report 7951550 (Version 2)
Quarter: 2016Q1

REPORT INFORMATION
  Report Type: Spontaneous
  Country: US (occurrence: US)
  Receive Date: 20110519
  Receipt Date: 20160302
  Transmission Date: 20160526
  Serious: No
  Sender: FDA-Public Use
  Company Number: US-RB-025164-11

PATIENT
  Age: 6 Year
  Sex: Female
  Weight: 24.04 kg

DRUGS (1)
  1. CHILDRENS MUCINEX MINI-MELTS COUGH [Suspect]
     Active Substance: DEXTROMETHORPHAN HYDROBROMIDE\GUAIFENESIN
     Dosage: 100MG. PATIENT TOOK 1 PACKET AT 5.30PM ON 11-MAY-2011 AND PACKET AT 9.30PM. TOOK ANOTHER AT 6.30AM T
     Route: 048

REACTIONS (2)
  - Dizziness [Recovered/Resolved]
  - Epistaxis [Recovered/Resolved]

NARRATIVE: CASE EVENT DATE: 20110512
